FAERS Safety Report 17564645 (Version 1)
Quarter: 2020Q1

REPORT INFORMATION
  Report Type: Spontaneous
  Country: TR (occurrence: TR)
  Receive Date: 20200320
  Receipt Date: 20200320
  Transmission Date: 20200409
  Serious: Yes (Death, Hospitalization, Other)
  Sender: FDA-Public Use
  Company Number: ALC2020TR002379

PATIENT
  Sex: Female

DRUGS (2)
  1. PHENYLEPHRINE [Suspect]
     Active Substance: PHENYLEPHRINE HYDROCHLORIDE
     Indication: RETINOPATHY OF PREMATURITY
     Dosage: UNK
     Route: 065
  2. CYCLOPENTOLATE HCL 1% [Suspect]
     Active Substance: CYCLOPENTOLATE HYDROCHLORIDE
     Indication: RETINOPATHY OF PREMATURITY
     Dosage: UNK
     Route: 065

REACTIONS (1)
  - Necrotising enterocolitis neonatal [Fatal]
